FAERS Safety Report 9345793 (Version 2)
Quarter: 2013Q3

REPORT INFORMATION
  Report Type: Spontaneous
  Country: US (occurrence: US)
  Receive Date: 20130613
  Receipt Date: 20130729
  Transmission Date: 20140515
  Serious: Yes (Hospitalization)
  Sender: FDA-Public Use
  Company Number: US-PFIZER INC-2013175256

PATIENT
  Age: 67 Year
  Sex: Male

DRUGS (3)
  1. VFEND [Suspect]
     Indication: ANTIFUNGAL PROPHYLAXIS
     Dosage: 200 MG, 2X/DAY
     Route: 048
     Dates: start: 20130205, end: 20130529
  2. VALCYTE [Concomitant]
     Indication: ANTIVIRAL PROPHYLAXIS
     Dosage: 450 MG, Q 48 HRS
     Route: 048
     Dates: start: 20130204, end: 20130528
  3. MYFORTIC [Concomitant]
     Indication: PROPHYLAXIS AGAINST TRANSPLANT REJECTION
     Dosage: 360 MG, 2X/DAY
     Route: 048
     Dates: start: 20130228

REACTIONS (1)
  - Neutropenia [Recovered/Resolved]
